FAERS Safety Report 7324186-4 (Version None)
Quarter: 2011Q1

REPORT INFORMATION
  Report Type: 
  Country: None (occurrence: None)
  Receive Date: 20110217
  Receipt Date: 20110203
  Transmission Date: 20110831
  Serious: Yes (Disabling, Other)
  Sender: FDA-Public Use
  Company Number: 2010P1002572

PATIENT
  Age: 82 Year
  Sex: Female
  Weight: 53.978 kg

DRUGS (7)
  1. BACLOFEN [Concomitant]
  2. FENTANYL-25 [Suspect]
     Indication: PAIN
     Dosage: 25 MCG/HR, TDER
     Route: 062
     Dates: start: 20081101, end: 20101111
  3. FENTANYL-25 [Suspect]
     Indication: PAIN
     Dosage: 25 MCG/HR; Q48H; TDER
     Route: 062
     Dates: start: 20101101
  4. FENTANYL-12 [Suspect]
     Indication: PAIN
     Dosage: 12 MCG/HR; Q48H; TDER
     Route: 062
     Dates: start: 20101101
  5. SINEMET [Suspect]
     Indication: PARKINSON'S DISEASE
     Dosage: 50 PERCENT LESS
     Dates: end: 20100201
  6. SINEMET [Suspect]
     Indication: PARKINSON'S DISEASE
     Dosage: 50 PERCENT LESS
     Dates: start: 20100201
  7. NEURONTIN [Concomitant]

REACTIONS (10)
  - HYPERTENSION [None]
  - INADEQUATE ANALGESIA [None]
  - LOSS OF CONSCIOUSNESS [None]
  - APPLICATION SITE RASH [None]
  - DIZZINESS [None]
  - APPLICATION SITE PRURITUS [None]
  - INSOMNIA [None]
  - VERTIGO [None]
  - FALL [None]
  - APPLICATION SITE ERYTHEMA [None]
